FAERS Safety Report 4520025-5 (Version None)
Quarter: 2004Q4

REPORT INFORMATION
  Report Type: 
  Country: None (occurrence: None)
  Receive Date: 20041202
  Receipt Date: 20041202
  Transmission Date: 20050328
  Serious: Yes (Hospitalization)
  Sender: FDA-Public Use
  Company Number: None

PATIENT
  Age: 77 Year
  Sex: Female
  Weight: 67.1324 kg

DRUGS (5)
  1. EXEMESTANE 25MG NCI [Suspect]
     Indication: BREAST CANCER
     Dosage: 25 MG DAILY ORALLY
     Route: 048
     Dates: start: 20030109
  2. TOPROL-XL [Concomitant]
  3. LISINOPRIL [Concomitant]
  4. GLYBURIDE [Concomitant]
  5. SLIDING SCALE INSULIN [Concomitant]

REACTIONS (3)
  - HYPERGLYCAEMIA [None]
  - SEPSIS [None]
  - URINARY TRACT INFECTION [None]
